FAERS Safety Report 14444830 (Version 1)
Quarter: 2018Q1

REPORT INFORMATION
  Report Type: Spontaneous
  Country: US (occurrence: US)
  Receive Date: 20180126
  Receipt Date: 20180126
  Transmission Date: 20180509
  Serious: Yes (Other)
  Sender: FDA-Public Use
  Company Number: PHHY2018US010194

PATIENT
  Age: 61 Year
  Sex: Male

DRUGS (3)
  1. VORICONAZOLE. [Suspect]
     Active Substance: VORICONAZOLE
     Indication: ASPERGILLUS INFECTION
     Dosage: 450 MG, BID
     Route: 042
  2. VORICONAZOLE. [Suspect]
     Active Substance: VORICONAZOLE
     Indication: PNEUMONIA
     Dosage: 300 MG, BID
     Route: 042
  3. VORICONAZOLE. [Suspect]
     Active Substance: VORICONAZOLE
     Dosage: 300 MG, BID
     Route: 048

REACTIONS (5)
  - Periostitis [Recovering/Resolving]
  - Blood alkaline phosphatase increased [Recovered/Resolved]
  - Joint swelling [Recovering/Resolving]
  - Fluoride increased [Unknown]
  - Arthralgia [Recovering/Resolving]
